FAERS Safety Report 10582149 (Version 2)
Quarter: 2015Q1

REPORT INFORMATION
  Report Type: Spontaneous
  Country: US (occurrence: US)
  Receive Date: 20141113
  Receipt Date: 20150107
  Transmission Date: 20150720
  Serious: Yes (Hospitalization, Other)
  Sender: FDA-Public Use
  Company Number: US-PFIZER INC-2014309906

PATIENT
  Age: 58 Year
  Sex: Female
  Weight: 72 kg

DRUGS (7)
  1. TYVASO [Suspect]
     Active Substance: TREPROSTINIL
     Dosage: UNK (18-54 MICROGRAMS)
     Route: 045
     Dates: start: 20140929
  2. VELETRI [Suspect]
     Active Substance: EPOPROSTENOL
     Dosage: UNK
  3. TYVASO [Suspect]
     Active Substance: TREPROSTINIL
     Indication: PULMONARY ARTERIAL HYPERTENSION
     Dosage: UNK (18-54 MICROGRAM)
     Route: 045
     Dates: start: 20140929
  4. TYVASO [Suspect]
     Active Substance: TREPROSTINIL
     Dosage: UNK (18-54 MICROGRAMS)
     Route: 045
     Dates: start: 20140929
  5. REVATIO [Suspect]
     Active Substance: SILDENAFIL CITRATE
     Dosage: UNK
  6. TYVASO [Suspect]
     Active Substance: TREPROSTINIL
     Dosage: UNK (18-54 MICROGRAMS)
     Route: 045
     Dates: start: 20141027
  7. TYVASO [Suspect]
     Active Substance: TREPROSTINIL
     Dosage: UNK, 4X/DAY (18-54 MICROGRAMS)
     Route: 045
     Dates: start: 20141027

REACTIONS (22)
  - Pancreatic disorder [Unknown]
  - Catheter site inflammation [Recovering/Resolving]
  - Fatigue [Unknown]
  - Asthenia [Unknown]
  - Device related infection [Unknown]
  - Contusion [Recovering/Resolving]
  - Condition aggravated [Unknown]
  - Dyspnoea exertional [Unknown]
  - Hepatomegaly [Unknown]
  - Splenomegaly [Unknown]
  - Malaise [Unknown]
  - Cough [Recovered/Resolved]
  - Catheter site erythema [Unknown]
  - Headache [Recovering/Resolving]
  - Pallor [Unknown]
  - Catheter site nodule [Unknown]
  - Urticaria [Recovering/Resolving]
  - Throat tightness [Unknown]
  - Catheter site infection [Unknown]
  - Epistaxis [Recovering/Resolving]
  - Depression [Unknown]
  - Somnolence [Unknown]
